FAERS Safety Report 20419839 (Version 1)
Quarter: 2022Q1

REPORT INFORMATION
  Report Type: Spontaneous
  Country: US (occurrence: None)
  Receive Date: 20220203
  Receipt Date: 20220203
  Transmission Date: 20220424
  Serious: No
  Sender: FDA-Public Use
  Company Number: 2022A041757

PATIENT
  Sex: Male
  Weight: 63.5 kg

DRUGS (1)
  1. FARXIGA [Suspect]
     Active Substance: DAPAGLIFLOZIN PROPANEDIOL
     Indication: Diabetes mellitus
     Route: 048

REACTIONS (4)
  - Penile discomfort [Unknown]
  - Penile erythema [Unknown]
  - Skin tightness [Unknown]
  - Penis disorder [Unknown]
